FAERS Safety Report 6648347-2 (Version None)
Quarter: 2010Q1

REPORT INFORMATION
  Report Type: 
  Country: None (occurrence: None)
  Receive Date: 20100318
  Receipt Date: 20100302
  Transmission Date: 20100710
  Serious: Yes (Life-Threatening, Hospitalization)
  Sender: FDA-Public Use
  Company Number: CTI_01137_2010

PATIENT
  Sex: Male

DRUGS (2)
  1. SPECTRACEF [Suspect]
     Indication: OFF LABEL USE
     Dosage: 81 MG ORAL
     Dates: start: 20090507, end: 20090509
  2. WIDECILLIN (WIDECILLIN (AMOXICILLIN HYDRATE)) (NOT SPECIFIED) [Suspect]
     Indication: INFECTION
     Dosage: 450 MG QD ORAL
     Route: 048
     Dates: start: 20090506, end: 20090507

REACTIONS (4)
  - DRUG RASH WITH EOSINOPHILIA AND SYSTEMIC SYMPTOMS [None]
  - GENERALISED OEDEMA [None]
  - HEPATIC FUNCTION ABNORMAL [None]
  - LYMPHOCYTE STIMULATION TEST POSITIVE [None]
